FAERS Safety Report 11644608 (Version 1)
Quarter: 2015Q4

REPORT INFORMATION
  Report Type: Spontaneous
  Country: FR (occurrence: AT)
  Receive Date: 20151020
  Receipt Date: 20151020
  Transmission Date: 20160304
  Serious: Yes (Hospitalization)
  Sender: FDA-Public Use
  Company Number: AT-FRI-1000080299

PATIENT
  Sex: Male
  Weight: 92 kg

DRUGS (10)
  1. MILNACIPRAN [Suspect]
     Active Substance: MILNACIPRAN
     Indication: PRODUCT USED FOR UNKNOWN INDICATION
     Dosage: 50 MG
     Dates: start: 201401, end: 20140217
  2. AKINETON [Concomitant]
     Active Substance: BIPERIDEN HYDROCHLORIDE
  3. WELLBUTRIN [Concomitant]
     Active Substance: BUPROPION HYDROCHLORIDE
     Dosage: 150 MG
     Dates: start: 201310, end: 201401
  4. WELLBUTRIN [Concomitant]
     Active Substance: BUPROPION HYDROCHLORIDE
     Dosage: 150 MG
     Dates: start: 20140226
  5. SEROQUEL [Concomitant]
     Active Substance: QUETIAPINE FUMARATE
     Dosage: 200 MG
     Dates: start: 20140215, end: 20140224
  6. SEROQUEL [Concomitant]
     Active Substance: QUETIAPINE FUMARATE
     Dosage: 150 MG
     Dates: start: 20140225
  7. ATARAX [Concomitant]
     Active Substance: HYDROXYZINE\HYDROXYZINE HYDROCHLORIDE
     Dosage: 75 MG
     Dates: start: 201312
  8. MILNACIPRAN [Suspect]
     Active Substance: MILNACIPRAN
     Dosage: 100 MG
     Dates: start: 20140218, end: 20140225
  9. MILNACIPRAN [Suspect]
     Active Substance: MILNACIPRAN
     Dosage: 50 MG
     Dates: start: 20140226, end: 20140303
  10. ZELDOX [Suspect]
     Active Substance: ZIPRASIDONE
     Indication: PRODUCT USED FOR UNKNOWN INDICATION
     Dosage: 60 MG
     Dates: start: 2011, end: 20140214

REACTIONS (5)
  - Bruxism [Recovering/Resolving]
  - Tension [Recovering/Resolving]
  - Mood altered [Recovering/Resolving]
  - Dyskinesia [Recovering/Resolving]
  - No therapeutic response [Recovering/Resolving]

NARRATIVE: CASE EVENT DATE: 20140213
